FAERS Safety Report 23968431 (Version 1)
Quarter: 2024Q2

REPORT INFORMATION
  Report Type: Spontaneous
  Country: US (occurrence: US)
  Receive Date: 20240612
  Receipt Date: 20240612
  Transmission Date: 20240716
  Serious: No
  Sender: FDA-Public Use
  Company Number: US-PFIZER INC-PV202400075465

PATIENT
  Age: 47 Year
  Sex: Male

DRUGS (4)
  1. GENOTROPIN [Suspect]
     Active Substance: SOMATROPIN
     Dosage: 0.2 MG/DAY 7 DAYS/WEEK, EVERY DAY FOR 30 DAYS
  2. NGENLA [Suspect]
     Active Substance: SOMATROGON-GHLA
     Dosage: UNK
  3. PRASTERONE [Concomitant]
     Active Substance: PRASTERONE
     Dosage: UNK
  4. CORTEF [Concomitant]
     Active Substance: HYDROCORTISONE
     Dosage: TAKE 2 AND ONE HALF TABLETS BY MOUTH EVERY DAY
     Route: 048

REACTIONS (4)
  - Sinus disorder [Unknown]
  - Weight loss poor [Unknown]
  - Acrochordon [Unknown]
  - Mammogram abnormal [Unknown]
